FAERS Safety Report 9125216 (Version 1)
Quarter: 2013Q1

REPORT INFORMATION
  Report Type: Spontaneous
  Country: US (occurrence: US)
  Receive Date: 20130117
  Receipt Date: 20130117
  Transmission Date: 20140127
  Serious: Yes (Hospitalization, Other)
  Sender: FDA-Public Use
  Company Number: US-PFIZER INC-2013018682

PATIENT
  Sex: 0

DRUGS (3)
  1. TIKOSYN [Suspect]
     Dosage: 500 UG, 2X/DAY
  2. TIKOSYN [Suspect]
     Dosage: 250 UG, 2X/DAY
  3. TIKOSYN [Suspect]
     Dosage: 375 UG, 2X/DAY

REACTIONS (4)
  - Blood potassium increased [Unknown]
  - Cardiac failure [Unknown]
  - Pulmonary oedema [Unknown]
  - Atrial fibrillation [Unknown]
